FAERS Safety Report 7909854-5 (Version None)
Quarter: 2011Q4

REPORT INFORMATION
  Report Type: 
  Country: None (occurrence: None)
  Receive Date: 20111111
  Receipt Date: 20111104
  Transmission Date: 20120403
  Serious: Yes (Other)
  Sender: FDA-Public Use
  Company Number: US-MERCK-1111USA00644

PATIENT
  Age: 47 Year
  Sex: Male

DRUGS (2)
  1. PROPECIA [Suspect]
     Indication: ALOPECIA
     Route: 048
     Dates: start: 20020101, end: 20050101
  2. ZYRTEC [Concomitant]
     Route: 065

REACTIONS (1)
  - PROSTATE CANCER [None]
